FAERS Safety Report 15287874 (Version 1)
Quarter: 2018Q3

REPORT INFORMATION
  Report Type: Spontaneous
  Country: US (occurrence: US)
  Receive Date: 20180817
  Receipt Date: 20180817
  Transmission Date: 20181010
  Serious: No
  Sender: FDA-Public Use
  Company Number: US-PFIZER INC-2018329356

PATIENT
  Age: 55 Year
  Sex: Female
  Weight: 92.97 kg

DRUGS (1)
  1. IBRANCE [Suspect]
     Active Substance: PALBOCICLIB
     Indication: BREAST CANCER METASTATIC
     Dosage: 125 MG, CYCLIC, (D 1?21 Q 28 DAYS)
     Route: 048
     Dates: start: 201707

REACTIONS (3)
  - Alopecia [Unknown]
  - Drug dose omission [Unknown]
  - Pain [Unknown]
